FAERS Safety Report 12336395 (Version 1)
Quarter: 2016Q2

REPORT INFORMATION
  Report Type: Spontaneous
  Country: US (occurrence: US)
  Receive Date: 20160505
  Receipt Date: 20160505
  Transmission Date: 20160815
  Serious: No
  Sender: FDA-Public Use
  Company Number: US-BAYER-2016-081518

PATIENT
  Age: 86 Year
  Sex: Female
  Weight: 47.62 kg

DRUGS (4)
  1. ALEVE PM [Suspect]
     Active Substance: DIPHENHYDRAMINE HYDROCHLORIDE\NAPROXEN SODIUM
     Indication: SLEEP DISORDER THERAPY
     Dosage: 2 DF, QD
     Route: 048
     Dates: start: 20160425, end: 20160426
  2. VITAMINS NOS [Concomitant]
     Active Substance: VITAMINS
  3. ALEVE [Suspect]
     Active Substance: NAPROXEN SODIUM
     Indication: NERVE INJURY
     Dosage: 1 DF, PRN
     Route: 048
  4. ALEVE [Suspect]
     Active Substance: NAPROXEN SODIUM
     Indication: NERVE INJURY
     Dosage: 2 DF, PRN
     Route: 048

REACTIONS (3)
  - Product use issue [None]
  - Product use issue [None]
  - Medication error [None]

NARRATIVE: CASE EVENT DATE: 20160425
